FAERS Safety Report 6786030-3 (Version None)
Quarter: 2010Q2

REPORT INFORMATION
  Report Type: 
  Country: None (occurrence: None)
  Receive Date: 20100623
  Receipt Date: 20100616
  Transmission Date: 20101027
  Serious: Yes (Other)
  Sender: FDA-Public Use
  Company Number: US-BAXTER-2010BH015231

PATIENT
  Age: 53 Year
  Sex: Female

DRUGS (9)
  1. IMMUNE GLOBULIN INTRAVENOUS (HUMAN) [Suspect]
     Indication: IMMUNODEFICIENCY COMMON VARIABLE
     Route: 042
     Dates: start: 20050304, end: 20050401
  2. IMMUNE GLOBULIN INTRAVENOUS (HUMAN) [Suspect]
     Indication: PRIMARY IMMUNODEFICIENCY SYNDROME
     Route: 042
     Dates: start: 20050304, end: 20050401
  3. SULFONAMIDES [Concomitant]
  4. GLUTAMATE SODIUM [Concomitant]
  5. ATORVASTATIN [Concomitant]
  6. ESTROGEN NOS [Concomitant]
  7. MEPERIDINE HYDROCHLORIDE [Concomitant]
  8. ACETYLSALICYLIC ACID [Concomitant]
  9. ALENDRONIC ACID [Concomitant]

REACTIONS (4)
  - BLISTER [None]
  - CHEST DISCOMFORT [None]
  - DYSPNOEA [None]
  - RASH [None]
